FAERS Safety Report 6818695-1 (Version None)
Quarter: 2010Q3

REPORT INFORMATION
  Report Type: 
  Country: None (occurrence: None)
  Receive Date: 20100706
  Receipt Date: 20100622
  Transmission Date: 20110219
  Serious: Yes (Hospitalization)
  Sender: FDA-Public Use
  Company Number: DE-ELI_LILLY_AND_COMPANY-DE201005007598

PATIENT
  Age: 80 Year
  Sex: Male

DRUGS (5)
  1. CYMBALTA [Suspect]
     Indication: DEPRESSION
     Dosage: UNK, UNKNOWN
     Route: 048
     Dates: start: 20100501
  2. NOVODIGAL [Concomitant]
     Dosage: UNK, UNKNOWN
     Route: 065
  3. LORAZEPAM [Concomitant]
     Dosage: UNK, UNKNOWN
     Route: 065
  4. IMODIUM [Concomitant]
     Dosage: UNK, UNKNOWN
     Route: 065
  5. METRONIDAZOLE [Concomitant]
     Dosage: UNK, UNKNOWN
     Route: 065

REACTIONS (3)
  - MUSCULOSKELETAL PAIN [None]
  - MUSCULOSKELETAL STIFFNESS [None]
  - PAIN IN EXTREMITY [None]
